FAERS Safety Report 12991505 (Version 1)
Quarter: 2016Q4

REPORT INFORMATION
  Report Type: Spontaneous
  Country: BR (occurrence: BR)
  Receive Date: 20161201
  Receipt Date: 20161201
  Transmission Date: 20170207
  Serious: Yes (Other)
  Sender: FDA-Public Use
  Company Number: BR-PFIZER INC-2016553744

PATIENT

DRUGS (1)
  1. LORAX [Suspect]
     Active Substance: LORAZEPAM

REACTIONS (1)
  - Deafness [Not Recovered/Not Resolved]
